FAERS Safety Report 4609609-3 (Version None)
Quarter: 2005Q1

REPORT INFORMATION
  Report Type: 
  Country: None (occurrence: None)
  Receive Date: 20050314
  Receipt Date: 20050301
  Transmission Date: 20050727
  Serious: Yes (Other)
  Sender: FDA-Public Use
  Company Number: FR-2005-003155

PATIENT
  Age: 35 Year
  Sex: Female

DRUGS (1)
  1. JASMINE (DROSPIRENONE, ETHINYLESTRADIOL) FILM TABLET [Suspect]
     Indication: ORAL CONTRACEPTION
     Dosage: 1 TAB(S), 21D/28 D, ORAL
     Route: 048
     Dates: start: 20031201, end: 20050301

REACTIONS (2)
  - DISEASE RECURRENCE [None]
  - MYOPIA [None]
